FAERS Safety Report 12636425 (Version 2)
Quarter: 2016Q3

REPORT INFORMATION
  Report Type: Report from Study
  Country: MX (occurrence: MX)
  Receive Date: 20160809
  Receipt Date: 20160822
  Transmission Date: 20161109
  Serious: Yes (Death, Hospitalization)
  Sender: FDA-Public Use
  Company Number: PHHY2016MX108968

PATIENT
  Age: 74 Year
  Sex: Male

DRUGS (2)
  1. ATORVASTATIN [Concomitant]
     Active Substance: ATORVASTATIN
     Indication: PRODUCT USED FOR UNKNOWN INDICATION
     Dosage: (OCCASIONALLY)
     Route: 065
  2. CO-DIOVAN [Suspect]
     Active Substance: HYDROCHLOROTHIAZIDE\VALSARTAN
     Indication: HYPERTENSION
     Dosage: 2 DF, QD (HYDROCHLOROTHIAZIDE 12.5 MG, VALSARTAN 160 MG) (4 YEARS AGO)
     Route: 065

REACTIONS (3)
  - Haemorrhage [Unknown]
  - Hepatic cirrhosis [Fatal]
  - Procedural complication [Unknown]

NARRATIVE: CASE EVENT DATE: 201603
